FAERS Safety Report 8267514-8 (Version None)
Quarter: 2012Q2

REPORT INFORMATION
  Report Type: 
  Country: None (occurrence: None)
  Receive Date: 20120409
  Receipt Date: 20120405
  Transmission Date: 20120825
  Serious: No
  Sender: FDA-Public Use
  Company Number: US-B.I. PHARMACEUTICALS,INC./RIDGEFIELD-2012-BP-06480BP

PATIENT
  Sex: Male

DRUGS (2)
  1. TRADJENTA [Suspect]
  2. ACTOS [Concomitant]

REACTIONS (2)
  - HAEMORRHOIDS [None]
  - CONSTIPATION [None]
